FAERS Safety Report 7509653-2 (Version None)
Quarter: 2011Q2

REPORT INFORMATION
  Report Type: 
  Country: None (occurrence: None)
  Receive Date: 20110527
  Receipt Date: 20110516
  Transmission Date: 20111010
  Serious: Yes (Hospitalization)
  Sender: FDA-Public Use
  Company Number: US-JNJFOC-20110502196

PATIENT
  Sex: Male
  Weight: 25.1 kg

DRUGS (6)
  1. ALPHA-D-GALACTOSIDASE [Concomitant]
  2. REMICADE [Suspect]
     Route: 042
     Dates: start: 20110224
  3. PROBIOTICS [Concomitant]
  4. ANTIBIOTICS [Concomitant]
     Indication: INFLAMMATORY BOWEL DISEASE
  5. REMICADE [Suspect]
     Indication: INFLAMMATORY BOWEL DISEASE
     Route: 042
     Dates: start: 20100915
  6. A MULTIVITAMIN [Concomitant]

REACTIONS (1)
  - ABDOMINAL INFECTION [None]
